FAERS Safety Report 4518919-X (Version None)
Quarter: 2004Q4

REPORT INFORMATION
  Report Type: 
  Country: None (occurrence: None)
  Receive Date: 20041203
  Receipt Date: 20041203
  Transmission Date: 20050328
  Serious: Yes (Hospitalization, Other)
  Sender: FDA-Public Use
  Company Number: None

PATIENT
  Age: 56 Year
  Sex: Female

DRUGS (9)
  1. BEXTRA [Suspect]
     Indication: SURGERY
     Dosage: 20 MG QD
     Dates: start: 20041107
  2. PAXIL [Concomitant]
  3. ASPIRIN [Concomitant]
  4. MINOXIDIL [Concomitant]
  5. BEXTRA [Concomitant]
  6. CALTRATE [Concomitant]
  7. VIT E [Concomitant]
  8. LO SARTAN [Concomitant]
  9. MICARDIS [Concomitant]

REACTIONS (1)
  - TRANSIENT ISCHAEMIC ATTACK [None]
